FAERS Safety Report 8493075 (Version 2)
Quarter: 2013Q3

REPORT INFORMATION
  Report Type: Report from Study
  Country: IN (occurrence: IN)
  Receive Date: 20120404
  Receipt Date: 20130915
  Transmission Date: 20140515
  Serious: Yes (Other)
  Sender: FDA-Public Use
  Company Number: PHHY2012IN028304

PATIENT
  Age: 67 Year
  Sex: Male

DRUGS (1)
  1. GLIVEC [Suspect]
     Indication: CHRONIC MYELOID LEUKAEMIA
     Dosage: 400 MG, UNK

REACTIONS (4)
  - Diabetes mellitus inadequate control [Unknown]
  - Weight decreased [Unknown]
  - Full blood count decreased [Unknown]
  - Drug resistance [Unknown]
